FAERS Safety Report 7792086-1 (Version None)
Quarter: 2011Q3

REPORT INFORMATION
  Report Type: 
  Country: None (occurrence: None)
  Receive Date: 20110930
  Receipt Date: 20110930
  Transmission Date: 20111222
  Serious: Yes (Life-Threatening, Disabling)
  Sender: FDA-Public Use
  Company Number: None

PATIENT
  Age: 43 Year
  Sex: Male
  Weight: 83.0083 kg

DRUGS (1)
  1. PREDNISONE TAB [Suspect]
     Indication: BACK PAIN
     Dosage: 6 TABLETS FOR SIX DAYS EVERY MORNING ORAL
     Route: 048
     Dates: start: 20110616, end: 20110619

REACTIONS (1)
  - GLUCOSE TOLERANCE IMPAIRED [None]
